FAERS Safety Report 6891642-2 (Version None)
Quarter: 2010Q3

REPORT INFORMATION
  Report Type: 
  Country: None (occurrence: None)
  Receive Date: 20100731
  Receipt Date: 20070913
  Transmission Date: 20110219
  Serious: No
  Sender: FDA-Public Use
  Company Number: US-PFIZER INC-2007077361

PATIENT
  Sex: Female
  Weight: 72.727 kg

DRUGS (10)
  1. SULFASALAZINE [Suspect]
     Indication: COLITIS ULCERATIVE
     Dates: start: 20070801
  2. MESALAZINE [Suspect]
     Indication: COLITIS ULCERATIVE
     Dates: end: 20070901
  3. PREDNISONE [Suspect]
     Indication: COLITIS ULCERATIVE
     Dates: start: 20070906
  4. VALSARTAN [Concomitant]
  5. HYDROCHLOROTHIAZIDE [Concomitant]
  6. CITRACAL + D [Concomitant]
  7. MULTI-VITAMINS [Concomitant]
  8. ALLEGRA [Concomitant]
  9. FOSAMAX [Concomitant]
  10. PULMICORT [Concomitant]

REACTIONS (2)
  - FEELING COLD [None]
  - ORAL DISCOMFORT [None]
